FAERS Safety Report 25067987 (Version 1)
Quarter: 2025Q1

REPORT INFORMATION
  Report Type: Spontaneous
  Country: FR (occurrence: FR)
  Receive Date: 20250312
  Receipt Date: 20250312
  Transmission Date: 20250408
  Serious: Yes (Hospitalization)
  Sender: MYLAN
  Company Number: None

PATIENT
  Age: 85 Year
  Sex: Female

DRUGS (56)
  1. SERTRALINE [Interacting]
     Active Substance: SERTRALINE HYDROCHLORIDE
     Indication: Mixed anxiety and depressive disorder
     Dosage: 25 MILLIGRAM, QD
     Dates: start: 20241205, end: 20241212
  2. SERTRALINE [Interacting]
     Active Substance: SERTRALINE HYDROCHLORIDE
     Dosage: 25 MILLIGRAM, QD
     Dates: start: 20241205, end: 20241212
  3. SERTRALINE [Interacting]
     Active Substance: SERTRALINE HYDROCHLORIDE
     Dosage: 25 MILLIGRAM, QD
     Route: 048
     Dates: start: 20241205, end: 20241212
  4. SERTRALINE [Interacting]
     Active Substance: SERTRALINE HYDROCHLORIDE
     Dosage: 25 MILLIGRAM, QD
     Route: 048
     Dates: start: 20241205, end: 20241212
  5. SERTRALINE [Interacting]
     Active Substance: SERTRALINE HYDROCHLORIDE
     Dosage: 50 MILLIGRAM, QD
     Dates: start: 20241212, end: 20250109
  6. SERTRALINE [Interacting]
     Active Substance: SERTRALINE HYDROCHLORIDE
     Dosage: 50 MILLIGRAM, QD
     Dates: start: 20241212, end: 20250109
  7. SERTRALINE [Interacting]
     Active Substance: SERTRALINE HYDROCHLORIDE
     Dosage: 50 MILLIGRAM, QD
     Route: 048
     Dates: start: 20241212, end: 20250109
  8. SERTRALINE [Interacting]
     Active Substance: SERTRALINE HYDROCHLORIDE
     Dosage: 50 MILLIGRAM, QD
     Route: 048
     Dates: start: 20241212, end: 20250109
  9. SERTRALINE [Interacting]
     Active Substance: SERTRALINE HYDROCHLORIDE
     Dosage: 25 MILLIGRAM, QD
     Dates: start: 20250109, end: 20250205
  10. SERTRALINE [Interacting]
     Active Substance: SERTRALINE HYDROCHLORIDE
     Dosage: 25 MILLIGRAM, QD
     Route: 048
     Dates: start: 20250109, end: 20250205
  11. SERTRALINE [Interacting]
     Active Substance: SERTRALINE HYDROCHLORIDE
     Dosage: 25 MILLIGRAM, QD
     Dates: start: 20250109, end: 20250205
  12. SERTRALINE [Interacting]
     Active Substance: SERTRALINE HYDROCHLORIDE
     Dosage: 25 MILLIGRAM, QD
     Route: 048
     Dates: start: 20250109, end: 20250205
  13. INSULIN GLARGINE [Interacting]
     Active Substance: INSULIN GLARGINE
     Indication: Type 2 diabetes mellitus
     Dosage: 36 INTERNATIONAL UNIT, QD (PARENTERAL)
  14. INSULIN GLARGINE [Interacting]
     Active Substance: INSULIN GLARGINE
     Dosage: 36 INTERNATIONAL UNIT, QD (PARENTERAL)
     Route: 065
  15. INSULIN GLARGINE [Interacting]
     Active Substance: INSULIN GLARGINE
     Dosage: 36 INTERNATIONAL UNIT, QD (PARENTERAL)
     Route: 065
  16. INSULIN GLARGINE [Interacting]
     Active Substance: INSULIN GLARGINE
     Dosage: 36 INTERNATIONAL UNIT, QD (PARENTERAL)
  17. DAPAGLIFLOZIN [Concomitant]
     Active Substance: DAPAGLIFLOZIN
     Indication: Type 2 diabetes mellitus
     Dosage: 10 MILLIGRAM, QD
  18. DAPAGLIFLOZIN [Concomitant]
     Active Substance: DAPAGLIFLOZIN
     Dosage: 10 MILLIGRAM, QD
     Route: 048
  19. DAPAGLIFLOZIN [Concomitant]
     Active Substance: DAPAGLIFLOZIN
     Dosage: 10 MILLIGRAM, QD
     Route: 048
  20. DAPAGLIFLOZIN [Concomitant]
     Active Substance: DAPAGLIFLOZIN
     Dosage: 10 MILLIGRAM, QD
  21. METFORMIN HYDROCHLORIDE [Concomitant]
     Active Substance: METFORMIN HYDROCHLORIDE
     Indication: Type 2 diabetes mellitus
     Dosage: 1 GRAM, BID (1G MORNING AND EVENING
  22. METFORMIN HYDROCHLORIDE [Concomitant]
     Active Substance: METFORMIN HYDROCHLORIDE
     Dosage: 1 GRAM, BID (1G MORNING AND EVENING
     Route: 048
  23. METFORMIN HYDROCHLORIDE [Concomitant]
     Active Substance: METFORMIN HYDROCHLORIDE
     Dosage: 1 GRAM, BID (1G MORNING AND EVENING
     Route: 048
  24. METFORMIN HYDROCHLORIDE [Concomitant]
     Active Substance: METFORMIN HYDROCHLORIDE
     Dosage: 1 GRAM, BID (1G MORNING AND EVENING
  25. FUROSEMIDE [Concomitant]
     Active Substance: FUROSEMIDE
     Indication: Product used for unknown indication
     Dosage: 40 MILLIGRAM, QD
  26. FUROSEMIDE [Concomitant]
     Active Substance: FUROSEMIDE
     Dosage: 40 MILLIGRAM, QD
     Route: 048
  27. FUROSEMIDE [Concomitant]
     Active Substance: FUROSEMIDE
     Dosage: 40 MILLIGRAM, QD
     Route: 048
  28. FUROSEMIDE [Concomitant]
     Active Substance: FUROSEMIDE
     Dosage: 40 MILLIGRAM, QD
  29. ESOMEPRAZOLE [Concomitant]
     Active Substance: ESOMEPRAZOLE
     Indication: Product used for unknown indication
     Dosage: 40 MILLIGRAM, QD
  30. ESOMEPRAZOLE [Concomitant]
     Active Substance: ESOMEPRAZOLE
     Dosage: 40 MILLIGRAM, QD
     Route: 048
  31. ESOMEPRAZOLE [Concomitant]
     Active Substance: ESOMEPRAZOLE
     Dosage: 40 MILLIGRAM, QD
     Route: 048
  32. ESOMEPRAZOLE [Concomitant]
     Active Substance: ESOMEPRAZOLE
     Dosage: 40 MILLIGRAM, QD
  33. TRAMADOL HYDROCHLORIDE [Concomitant]
     Active Substance: TRAMADOL HYDROCHLORIDE
     Indication: Product used for unknown indication
     Dosage: 50 MILLIGRAM, TID (50MG MORNING NOON AND EVENING)
  34. TRAMADOL HYDROCHLORIDE [Concomitant]
     Active Substance: TRAMADOL HYDROCHLORIDE
     Dosage: 50 MILLIGRAM, TID (50MG MORNING NOON AND EVENING)
     Route: 048
  35. TRAMADOL HYDROCHLORIDE [Concomitant]
     Active Substance: TRAMADOL HYDROCHLORIDE
     Dosage: 50 MILLIGRAM, TID (50MG MORNING NOON AND EVENING)
     Route: 048
  36. TRAMADOL HYDROCHLORIDE [Concomitant]
     Active Substance: TRAMADOL HYDROCHLORIDE
     Dosage: 50 MILLIGRAM, TID (50MG MORNING NOON AND EVENING)
  37. KARDEGIC [Concomitant]
     Active Substance: ASPIRIN DL-LYSINE
     Indication: Product used for unknown indication
     Dosage: 75 MILLIGRAM, QD (1 NOON) (POWDER FOR ORAL SOLUTION IN SACHET)
  38. KARDEGIC [Concomitant]
     Active Substance: ASPIRIN DL-LYSINE
     Dosage: 75 MILLIGRAM, QD (1 NOON) (POWDER FOR ORAL SOLUTION IN SACHET)
     Route: 048
  39. KARDEGIC [Concomitant]
     Active Substance: ASPIRIN DL-LYSINE
     Dosage: 75 MILLIGRAM, QD (1 NOON) (POWDER FOR ORAL SOLUTION IN SACHET)
     Route: 048
  40. KARDEGIC [Concomitant]
     Active Substance: ASPIRIN DL-LYSINE
     Dosage: 75 MILLIGRAM, QD (1 NOON) (POWDER FOR ORAL SOLUTION IN SACHET)
  41. SIMVASTATIN [Concomitant]
     Active Substance: SIMVASTATIN
     Indication: Product used for unknown indication
     Dosage: 40 MILLIGRAM, QD
  42. SIMVASTATIN [Concomitant]
     Active Substance: SIMVASTATIN
     Dosage: 40 MILLIGRAM, QD
     Route: 048
  43. SIMVASTATIN [Concomitant]
     Active Substance: SIMVASTATIN
     Dosage: 40 MILLIGRAM, QD
     Route: 048
  44. SIMVASTATIN [Concomitant]
     Active Substance: SIMVASTATIN
     Dosage: 40 MILLIGRAM, QD
  45. ALPRAZOLAM [Concomitant]
     Active Substance: ALPRAZOLAM
     Indication: Product used for unknown indication
     Dosage: 0.5 MILLIGRAM, QD
  46. ALPRAZOLAM [Concomitant]
     Active Substance: ALPRAZOLAM
     Dosage: 0.5 MILLIGRAM, QD
     Route: 048
  47. ALPRAZOLAM [Concomitant]
     Active Substance: ALPRAZOLAM
     Dosage: 0.5 MILLIGRAM, QD
     Route: 048
  48. ALPRAZOLAM [Concomitant]
     Active Substance: ALPRAZOLAM
     Dosage: 0.5 MILLIGRAM, QD
  49. DAFALGAN [Concomitant]
     Active Substance: ACETAMINOPHEN
     Indication: Product used for unknown indication
     Dosage: 1 GRAM, TID (1G MORNING NOON EVENING)
  50. DAFALGAN [Concomitant]
     Active Substance: ACETAMINOPHEN
     Dosage: 1 GRAM, TID (1G MORNING NOON EVENING)
     Route: 048
  51. DAFALGAN [Concomitant]
     Active Substance: ACETAMINOPHEN
     Dosage: 1 GRAM, TID (1G MORNING NOON EVENING)
     Route: 048
  52. DAFALGAN [Concomitant]
     Active Substance: ACETAMINOPHEN
     Dosage: 1 GRAM, TID (1G MORNING NOON EVENING)
  53. LACTULOSE [Concomitant]
     Active Substance: LACTULOSE
     Indication: Product used for unknown indication
     Dosage: 2 DOSAGE FORM, QD (10G/15ML 2 SACHETS IN THE MORNING)
  54. LACTULOSE [Concomitant]
     Active Substance: LACTULOSE
     Dosage: 2 DOSAGE FORM, QD (10G/15ML 2 SACHETS IN THE MORNING)
     Route: 048
  55. LACTULOSE [Concomitant]
     Active Substance: LACTULOSE
     Dosage: 2 DOSAGE FORM, QD (10G/15ML 2 SACHETS IN THE MORNING)
     Route: 048
  56. LACTULOSE [Concomitant]
     Active Substance: LACTULOSE
     Dosage: 2 DOSAGE FORM, QD (10G/15ML 2 SACHETS IN THE MORNING)

REACTIONS (2)
  - Hypoglycaemia [Recovered/Resolved]
  - Drug interaction [Unknown]

NARRATIVE: CASE EVENT DATE: 20241215
